FAERS Safety Report 5828477-5 (Version None)
Quarter: 2008Q3

REPORT INFORMATION
  Report Type: 
  Country: None (occurrence: None)
  Receive Date: 20080731
  Receipt Date: 20080722
  Transmission Date: 20090109
  Serious: Yes (Hospitalization)
  Sender: FDA-Public Use
  Company Number: TR-WATSON-2008-04446

PATIENT
  Age: 25 Year
  Sex: Male

DRUGS (9)
  1. FENTANYL CITRATE (WATSON LABORATORIES) [Suspect]
     Indication: SPINAL ANAESTHESIA
     Dosage: 120 UG, SINGLE
     Route: 037
     Dates: start: 20070101, end: 20070101
  2. ERGOT ALKALOIDS [Suspect]
     Indication: MIGRAINE
     Dosage: UNK
     Route: 065
     Dates: start: 20070101, end: 20070101
  3. MARIJUANA [Suspect]
     Indication: DRUG ABUSE
     Dosage: 2 DOSE WEEKLY FOR 2 YEARS
     Route: 065
     Dates: start: 20050101, end: 20070101
  4. EPHEDRINE SUL CAP [Suspect]
     Indication: DRUG USE FOR UNKNOWN INDICATION
     Dosage: UNKNOWN DOSE X 10 DAYS
     Route: 048
     Dates: start: 20070101, end: 20070101
  5. METHYLENEDIOXYMETHAMPHETAMINE [Suspect]
     Dosage: 2 PILLS TAKEN 3 WEEKS PRIOR TO HOSPITALIZATION
     Route: 048
     Dates: start: 20070101, end: 20070101
  6. BUPIVACAINE [Concomitant]
     Indication: SPINAL ANAESTHESIA
     Dosage: 16 MG, UNK
     Route: 050
     Dates: start: 20070101, end: 20070101
  7. MIDAZOLAM HCL [Concomitant]
     Indication: SEDATION
     Dosage: 5 MG, UNK
     Route: 042
     Dates: start: 20070101, end: 20070101
  8. PROPOFOL [Concomitant]
     Indication: HALLUCINATION
     Dosage: 0.5 MG/KG, Q1H
     Route: 042
     Dates: start: 20070101, end: 20070101
  9. VECURONIUM BROMIDE [Concomitant]
     Indication: GENERAL ANAESTHESIA
     Dosage: 0.1 MG/KG, UNK
     Route: 065
     Dates: start: 20070101, end: 20070101

REACTIONS (2)
  - DRUG INTERACTION [None]
  - SEROTONIN SYNDROME [None]
